FAERS Safety Report 5533527-X (Version None)
Quarter: 2007Q4

REPORT INFORMATION
  Report Type: 
  Country: None (occurrence: None)
  Receive Date: 20071120
  Receipt Date: 20070911
  Transmission Date: 20080405
  Serious: No
  Sender: FDA-Public Use
  Company Number: WAES 0709USA01580

PATIENT
  Age: 68 Year
  Sex: Female

DRUGS (4)
  1. JANUVIA [Suspect]
     Indication: BLOOD GLUCOSE FLUCTUATION
     Dosage: 100 MG/PO
     Route: 048
     Dates: start: 20070908, end: 20070910
  2. CYCLOSPORINE [Concomitant]
  3. GLIMEPIRIDE [Concomitant]
  4. PREDNISONE TAB [Concomitant]

REACTIONS (2)
  - INFLUENZA LIKE ILLNESS [None]
  - NASOPHARYNGITIS [None]
